FAERS Safety Report 8980706 (Version 1)
Quarter: 2012Q4

REPORT INFORMATION
  Report Type: Report from Study
  Country: CA (occurrence: CA)
  Receive Date: 20121221
  Receipt Date: 20121221
  Transmission Date: 20130627
  Serious: Yes (Hospitalization)
  Sender: FDA-Public Use
  Company Number: CA-JNJFOC-20121205854

PATIENT
  Age: 42 Year
  Sex: Male
  Weight: 85.1 kg

DRUGS (3)
  1. REMICADE [Suspect]
     Indication: CROHN^S DISEASE
     Route: 042
     Dates: start: 20091221
  2. ADVAIR [Concomitant]
     Route: 065
  3. VENTOLIN [Concomitant]
     Route: 065

REACTIONS (1)
  - Nasal septum disorder [Recovering/Resolving]
